FAERS Safety Report 7799053-2 (Version None)
Quarter: 2011Q4

REPORT INFORMATION
  Report Type: 
  Country: None (occurrence: None)
  Receive Date: 20111006
  Receipt Date: 20110921
  Transmission Date: 20120403
  Serious: Yes (Other)
  Sender: FDA-Public Use
  Company Number: US-BAYER-201033563NA

PATIENT
  Age: 51 Year
  Sex: Female
  Weight: 53.515 kg

DRUGS (1)
  1. YAZ [Suspect]
     Indication: ACNE
     Dosage: UNK
     Dates: start: 20060101, end: 20080101

REACTIONS (1)
  - DEEP VEIN THROMBOSIS [None]
